FAERS Safety Report 7784253-8 (Version None)
Quarter: 2011Q3

REPORT INFORMATION
  Report Type: 
  Country: None (occurrence: None)
  Receive Date: 20110928
  Receipt Date: 20110922
  Transmission Date: 20111222
  Serious: Yes (Other)
  Sender: FDA-Public Use
  Company Number: JP-BAYER-2011-080305

PATIENT
  Age: 73 Year
  Sex: Male

DRUGS (4)
  1. CIPROFLOXACIN HCL [Suspect]
     Indication: AEROMONA INFECTION
     Dosage: UNK
     Route: 065
  2. PIPERACILLIN SODIUM W/TAZOBACTAM [Concomitant]
     Indication: AEROMONA INFECTION
     Dosage: UNK
     Route: 042
  3. CLINDAMYCIN [Concomitant]
     Indication: AEROMONA INFECTION
     Dosage: UNK
     Route: 065
  4. DOPAMINE HYDROCHLORIDE [Concomitant]
     Indication: BLOOD PRESSURE DECREASED
     Dosage: UNK
     Route: 065

REACTIONS (2)
  - DISSEMINATED INTRAVASCULAR COAGULATION [None]
  - BLOOD CREATININE INCREASED [None]
